FAERS Safety Report 6187460-3 (Version None)
Quarter: 2009Q2

REPORT INFORMATION
  Report Type: 
  Country: None (occurrence: None)
  Receive Date: 20090512
  Receipt Date: 20090511
  Transmission Date: 20091009
  Serious: Yes (Other)
  Sender: FDA-Public Use
  Company Number: FR-BRISTOL-MYERS SQUIBB COMPANY-14603435

PATIENT
  Age: 36 Year
  Sex: Male

DRUGS (2)
  1. SUSTIVA [Suspect]
     Indication: HIV INFECTION
     Dates: start: 20080301
  2. TRUVADA [Suspect]
     Indication: HIV INFECTION
     Dates: start: 20080301

REACTIONS (2)
  - ALVEOLITIS [None]
  - STOMATITIS [None]
